FAERS Safety Report 23522456 (Version 4)
Quarter: 2024Q1

REPORT INFORMATION
  Report Type: Spontaneous
  Country: CO (occurrence: CO)
  Receive Date: 20240214
  Receipt Date: 20240318
  Transmission Date: 20240409
  Serious: No
  Sender: FDA-Public Use
  Company Number: CO-PFIZER INC-PV202400011461

PATIENT
  Age: 14 Year
  Sex: Male

DRUGS (2)
  1. GENOTROPIN [Suspect]
     Active Substance: SOMATROPIN
     Dosage: 1.2 MG, DAILY
     Route: 058
     Dates: start: 2023
  2. LEVOTHYROXINE SODIUM [Concomitant]
     Active Substance: LEVOTHYROXINE SODIUM
     Dosage: UNK

REACTIONS (4)
  - Wrong technique in device usage process [Unknown]
  - Accidental overdose [Unknown]
  - Device information output issue [Unknown]
  - Device leakage [Unknown]

NARRATIVE: CASE EVENT DATE: 20231201
